FAERS Safety Report 15158055 (Version 1)
Quarter: 2018Q3

REPORT INFORMATION
  Report Type: Spontaneous
  Country: BR (occurrence: BR)
  Receive Date: 20180718
  Receipt Date: 20180718
  Transmission Date: 20181010
  Serious: Yes (Other)
  Sender: FDA-Public Use
  Company Number: BR-ROCHE-2130235

PATIENT
  Sex: Male

DRUGS (2)
  1. RIVOTRIL [Suspect]
     Active Substance: CLONAZEPAM
     Indication: ANXIETY
     Dosage: 1 TABLET
     Route: 048
  2. RIVOTRIL [Suspect]
     Active Substance: CLONAZEPAM
     Indication: PANIC DISORDER
     Route: 048

REACTIONS (16)
  - Major depression [Unknown]
  - Poisoning [Unknown]
  - Muscular weakness [Unknown]
  - Muscle spasms [Unknown]
  - Dementia [Unknown]
  - Hypersensitivity [Unknown]
  - Drug ineffective [Unknown]
  - Anxiety [Unknown]
  - Drug dose omission [Unknown]
  - Erythema [Unknown]
  - Agitation [Unknown]
  - Insomnia [Unknown]
  - Headache [Unknown]
  - Tremor [Unknown]
  - Alopecia [Unknown]
  - Drug dependence [Unknown]
